FAERS Safety Report 21690144 (Version 2)
Quarter: 2022Q4

REPORT INFORMATION
  Report Type: Spontaneous
  Country: NL (occurrence: NL)
  Receive Date: 20221206
  Receipt Date: 20221222
  Transmission Date: 20230113
  Serious: Yes (Other)
  Sender: FDA-Public Use
  Company Number: NL-RECORDATI-2022005852

PATIENT
  Sex: Male

DRUGS (5)
  1. CARIPRAZINE HYDROCHLORIDE [Interacting]
     Active Substance: CARIPRAZINE HYDROCHLORIDE
     Indication: Substance-induced psychotic disorder
     Dosage: 4.5 MG, QD
     Dates: start: 20221115
  2. CARIPRAZINE HYDROCHLORIDE [Interacting]
     Active Substance: CARIPRAZINE HYDROCHLORIDE
     Dosage: 3 MG, QD
     Dates: start: 20221018
  3. OLANZAPINE [Interacting]
     Active Substance: OLANZAPINE
     Indication: Product used for unknown indication
     Dosage: 5 MG, QD
     Dates: end: 20221111
  4. TOPIRAMATE [Concomitant]
     Active Substance: TOPIRAMATE
     Indication: Product used for unknown indication
     Dosage: 2X25 MG ONCE DAILY
  5. OXAZEPAM [Concomitant]
     Active Substance: OXAZEPAM
     Indication: Product used for unknown indication
     Dosage: 10 MG, TID, WHEN NEEDED

REACTIONS (4)
  - Urinary retention [Recovered/Resolved]
  - Drug interaction [Recovered/Resolved]
  - Drug dose titration not performed [Unknown]
  - Off label use [Unknown]

NARRATIVE: CASE EVENT DATE: 20221111
